FAERS Safety Report 8984351 (Version 1)
Quarter: 2012Q4

REPORT INFORMATION
  Report Type: Spontaneous
  Country: DE (occurrence: None)
  Receive Date: 20121217
  Receipt Date: 20121217
  Transmission Date: 20130627
  Serious: Yes (Hospitalization, Congenital Anomaly, Other)
  Sender: FDA-Public Use
  Company Number: GER/GER/12/0027014

PATIENT
  Sex: Female
  Weight: 3.42 kg

DRUGS (4)
  1. VENLAFAXINE [Suspect]
     Indication: DRUG USE FOR UNKNOWN INDICATION
     Route: 064
     Dates: start: 20110504, end: 20120118
  2. DICLOFENAC [Suspect]
     Indication: DRUG USE FOR UNKNOWN INDICATION
     Route: 064
  3. HYPNOREX (LITHIUM CARBONATE) [Concomitant]
     Dosage: 400 mg, 2 in 1 D Trransplantal)
     Route: 064
  4. DOPEGYT (METHYLDOPA) [Concomitant]
     Route: 064

REACTIONS (7)
  - Neonatal respiratory distress syndrome [None]
  - Atrial septal defect [None]
  - Right ventricular hypertrophy [None]
  - Foetal heart rate deceleration [None]
  - Foetal acidosis [None]
  - Maternal drugs affecting foetus [None]
  - Caesarean section [None]
